FAERS Safety Report 8078319-5 (Version None)
Quarter: 2012Q1

REPORT INFORMATION
  Report Type: 
  Country: None (occurrence: None)
  Receive Date: 20120123
  Receipt Date: 20120112
  Transmission Date: 20120608
  Serious: Yes (Hospitalization, Other)
  Sender: FDA-Public Use
  Company Number: DSJ-2012-00600

PATIENT
  Age: 61 Year
  Sex: Female

DRUGS (4)
  1. NIMESULIDE (NIMESULIDE) (NIMESULIDE) [Suspect]
     Indication: EXTREMITY NECROSIS
     Dosage: 200 MG (100 MG, 2 IN 1 D), PER ORAL
     Dates: start: 20110101
  2. BENICAR [Suspect]
     Indication: HYPERTENSION
     Dosage: 20 MG (20 MG, 1 IN 1 D), PER ORAL, 40 MG (40 MG, 1 IN 1 D), PER ORAL
     Route: 048
     Dates: start: 20070101, end: 20120101
  3. BENICAR [Suspect]
     Indication: HYPERTENSION
     Dosage: 20 MG (20 MG, 1 IN 1 D), PER ORAL, 40 MG (40 MG, 1 IN 1 D), PER ORAL
     Route: 048
     Dates: start: 20120101
  4. CEPHALEXIN [Suspect]
     Indication: EXTREMITY NECROSIS
     Dosage: 2000 MG (500 MG, 4 IN 1 D), PER ORAL
     Route: 048
     Dates: start: 20110101

REACTIONS (4)
  - ROAD TRAFFIC ACCIDENT [None]
  - SKIN GRAFT [None]
  - EXTREMITY NECROSIS [None]
  - DRUG INEFFECTIVE [None]
